FAERS Safety Report 8887488 (Version 1)
Quarter: 2012Q4

REPORT INFORMATION
  Report Type: Spontaneous
  Country: US (occurrence: None)
  Receive Date: 20121101
  Receipt Date: 20121101
  Transmission Date: 20130627
  Serious: Yes (Hospitalization)
  Sender: FDA-Public Use
  Company Number: None

PATIENT
  Age: 67 Year
  Sex: Female
  Weight: 72.38 kg

DRUGS (7)
  1. METHOTREXATE [Suspect]
     Dosage: 5MG BID Q THURSDAY PO
RECENTLY
     Route: 048
  2. ANASTRAZOLE [Concomitant]
  3. ASA [Concomitant]
  4. ALLEGRA [Concomitant]
  5. OMEPRAZOLE [Concomitant]
  6. FOLIC ACID [Concomitant]
  7. FISH OIL [Concomitant]

REACTIONS (2)
  - Diverticulum intestinal [None]
  - Pancreatitis [None]
